FAERS Safety Report 20433595 (Version 1)
Quarter: 2022Q1

REPORT INFORMATION
  Report Type: Spontaneous
  Country: SA (occurrence: SA)
  Receive Date: 20220205
  Receipt Date: 20220205
  Transmission Date: 20220423
  Serious: Yes (Hospitalization, Other)
  Sender: FDA-Public Use
  Company Number: CLT-SA-2022-0012-219269

PATIENT
  Age: 20 Year
  Sex: Male

DRUGS (1)
  1. RISPERIDONE [Suspect]
     Active Substance: RISPERIDONE
     Indication: Schizophrenia
     Route: 050

REACTIONS (2)
  - Myasthenia gravis [Recovered/Resolved]
  - Unmasking of previously unidentified disease [Unknown]
